FAERS Safety Report 4829953-4 (Version None)
Quarter: 2005Q4

REPORT INFORMATION
  Report Type: 
  Country: None (occurrence: None)
  Receive Date: 20051115
  Receipt Date: 20051101
  Transmission Date: 20060501
  Serious: Yes (Other)
  Sender: FDA-Public Use
  Company Number: TR-2005-022878

PATIENT
  Age: 44 Year
  Sex: Male

DRUGS (2)
  1. BETAFERON (INTERFERON BETA -1B) INJECTION, 250?G [Suspect]
     Indication: MULTIPLE SCLEROSIS
     Dosage: 8 MIU, SUBCUTANEOUS
     Route: 058
     Dates: start: 20010101
  2. UNSPECIFIED TUBERCULOSIS TREATMENT [Concomitant]

REACTIONS (1)
  - PULMONARY TUBERCULOSIS [None]
